FAERS Safety Report 26063215 (Version 1)
Quarter: 2025Q4

REPORT INFORMATION
  Report Type: Spontaneous
  Country: EU (occurrence: EU)
  Receive Date: 20251119
  Receipt Date: 20251119
  Transmission Date: 20260118
  Serious: Yes (Death, Other)
  Sender: BIOVITRUM
  Company Number: EU-BIOVITRUM-2025-BE-015992

PATIENT

DRUGS (1)
  1. GAMIFANT [Suspect]
     Active Substance: EMAPALUMAB-LZSG
     Indication: Product used for unknown indication

REACTIONS (5)
  - Cytopenia [Unknown]
  - Serum ferritin increased [Unknown]
  - Condition aggravated [Fatal]
  - Haemophagocytic lymphohistiocytosis [Fatal]
  - Sepsis [Fatal]
